FAERS Safety Report 19755796 (Version 13)
Quarter: 2024Q4

REPORT INFORMATION
  Report Type: Report from Study
  Country: JP (occurrence: JP)
  Receive Date: 20210827
  Receipt Date: 20241205
  Transmission Date: 20250114
  Serious: Yes (Hospitalization, Other)
  Sender: NOVARTIS
  Company Number: NVSC2020JP353824

PATIENT
  Age: 1 Year
  Sex: Female
  Weight: 6.7 kg

DRUGS (7)
  1. ZOLGENSMA [Suspect]
     Active Substance: ONASEMNOGENE ABEPARVOVEC-XIOI
     Indication: Spinal muscular atrophy
     Dosage: 38.5 ML (1.1 X E14VG/KG), ONCE/SINGLE
     Route: 041
     Dates: start: 20200611, end: 20200611
  2. NUSINERSEN [Concomitant]
     Active Substance: NUSINERSEN
     Indication: Product used for unknown indication
     Dosage: UNK (DOSE 1)
     Route: 065
     Dates: start: 20191030
  3. NUSINERSEN [Concomitant]
     Active Substance: NUSINERSEN
     Dosage: UNK (DOSE 2)
     Route: 065
     Dates: start: 20191113
  4. NUSINERSEN [Concomitant]
     Active Substance: NUSINERSEN
     Dosage: UNK (DOSE 3)
     Route: 065
     Dates: start: 20191127
  5. NUSINERSEN [Concomitant]
     Active Substance: NUSINERSEN
     Dosage: UNK (DOSE 4)
     Route: 065
     Dates: start: 20200108
  6. NUSINERSEN [Concomitant]
     Active Substance: NUSINERSEN
     Dosage: UNK (MAINTENANCE)
     Route: 065
     Dates: start: 20200427
  7. RISDIPLAM [Concomitant]
     Active Substance: RISDIPLAM
     Indication: Product used for unknown indication
     Dosage: 4.4 ML
     Route: 050
     Dates: start: 20240924

REACTIONS (41)
  - Hepatic function abnormal [Recovered/Resolved]
  - Blood lactate dehydrogenase increased [Recovered/Resolved]
  - Aspartate aminotransferase increased [Recovered/Resolved]
  - Alanine aminotransferase increased [Recovered/Resolved]
  - Acute respiratory failure [Recovered/Resolved]
  - Pneumonia aspiration [Recovered/Resolved]
  - Dyspnoea [Unknown]
  - Breath sounds abnormal [Unknown]
  - Pyrexia [Unknown]
  - Hypoxia [Unknown]
  - Tachycardia [Unknown]
  - Atelectasis [Recovered/Resolved]
  - Pneumonia aspiration [Recovered/Resolved]
  - Atelectasis [Recovered/Resolved]
  - Respiratory disorder [Unknown]
  - Viral upper respiratory tract infection [Recovered/Resolved]
  - Rhinorrhoea [Unknown]
  - Mood altered [Unknown]
  - Tachypnoea [Unknown]
  - Pneumonia [Not Recovered/Not Resolved]
  - Viral upper respiratory tract infection [Recovered/Resolved]
  - Acute respiratory failure [Recovered/Resolved]
  - Viral upper respiratory tract infection [Recovered/Resolved]
  - Cough [Unknown]
  - Acute respiratory failure [Unknown]
  - White blood cell count increased [Unknown]
  - C-reactive protein increased [Unknown]
  - Pneumonia aspiration [Recovered/Resolved]
  - Pneumonia aspiration [Recovered/Resolved]
  - Cough [Unknown]
  - Oxygen saturation decreased [Unknown]
  - Pneumonia aspiration [Recovered/Resolved]
  - Rhinorrhoea [Unknown]
  - Haemorrhage subcutaneous [Unknown]
  - Platelet count decreased [Recovered/Resolved]
  - Pyrexia [Recovered/Resolved]
  - Vomiting [Recovered/Resolved]
  - Pyrexia [Recovered/Resolved]
  - Pyrexia [Recovered/Resolved]
  - Weight decreased [Recovered/Resolved]
  - Dysphagia [Unknown]

NARRATIVE: CASE EVENT DATE: 20200613
